FAERS Safety Report 7922568-0 (Version None)
Quarter: 2011Q4

REPORT INFORMATION
  Report Type: 
  Country: None (occurrence: None)
  Receive Date: 20111117
  Receipt Date: 20110121
  Transmission Date: 20120403
  Serious: No
  Sender: FDA-Public Use
  Company Number: US-AMGEN-USASP2011003883

PATIENT
  Age: 58 Year
  Sex: Female

DRUGS (1)
  1. ENBREL [Suspect]
     Indication: RHEUMATOID ARTHRITIS
     Dosage: 50 MG, QWK
     Dates: start: 20101218

REACTIONS (8)
  - INJECTION SITE SWELLING [None]
  - INJECTION SITE ERYTHEMA [None]
  - LOCAL SWELLING [None]
  - INJECTION SITE REACTION [None]
  - RASH PRURITIC [None]
  - INJECTION SITE RASH [None]
  - RASH PAPULAR [None]
  - PAIN OF SKIN [None]
